FAERS Safety Report 8564409-7 (Version None)
Quarter: 2012Q3

REPORT INFORMATION
  Report Type: 
  Country: None (occurrence: None)
  Receive Date: 20120727
  Receipt Date: 20120727
  Transmission Date: 20120928
  Serious: Yes (Hospitalization)
  Sender: FDA-Public Use
  Company Number: None

PATIENT
  Age: 63 Year
  Sex: Female
  Weight: 79.198 kg

DRUGS (1)
  1. LINIFANIB [Suspect]
     Indication: COLON CANCER
     Dosage: 17.5MG ORAL DAILY
     Route: 048
     Dates: start: 20120319, end: 20120322

REACTIONS (7)
  - HYPERAMMONAEMIA [None]
  - RENAL FAILURE ACUTE [None]
  - THROMBOCYTOPENIA [None]
  - URINARY TRACT INFECTION [None]
  - SOMNOLENCE [None]
  - SEPSIS [None]
  - PYELONEPHRITIS [None]
